FAERS Safety Report 5028331-5 (Version None)
Quarter: 2006Q2

REPORT INFORMATION
  Report Type: 
  Country: None (occurrence: None)
  Receive Date: 20060503
  Receipt Date: 20060210
  Transmission Date: 20061013
  Serious: No
  Sender: FDA-Public Use
  Company Number: FACT0600076

PATIENT
  Sex: Female

DRUGS (3)
  1. FACTIVE [Suspect]
     Indication: RESPIRATORY TRACT INFECTION BACTERIAL
     Dosage: 320 MG, QD, ORAL
     Route: 048
     Dates: start: 20060209, end: 20060209
  2. CEFOTAXIME (CEFOTAXIME) INJECTION [Suspect]
     Dosage: INTRAMUSCULAR
     Route: 030
     Dates: start: 20060209, end: 20060209
  3. PROBENECID (PROBENECID) PILL (EXCEPT TABLETS) [Suspect]
     Dosage: 2 UNK, ORAL
     Route: 048
     Dates: start: 20060209, end: 20060209

REACTIONS (2)
  - DRUG INTERACTION [None]
  - RASH GENERALISED [None]
